FAERS Safety Report 10653283 (Version 1)
Quarter: 2014Q4

REPORT INFORMATION
  Report Type: Spontaneous
  Country: US (occurrence: US)
  Receive Date: 20141215
  Receipt Date: 20141215
  Transmission Date: 20150529
  Serious: No
  Sender: FDA-Public Use
  Company Number: US-BAUSCH-BL-2014-003273

PATIENT
  Age: 52 Year
  Sex: Female
  Weight: 84.8 kg

DRUGS (1)
  1. VITRASE [Suspect]
     Active Substance: HYALURONIDASE, OVINE
     Indication: PRODUCT USED FOR UNKNOWN INDICATION
     Dates: start: 20140707, end: 20140707

REACTIONS (1)
  - Drug ineffective [Not Recovered/Not Resolved]

NARRATIVE: CASE EVENT DATE: 20140707
